FAERS Safety Report 15498796 (Version 12)
Quarter: 2020Q3

REPORT INFORMATION
  Report Type: Spontaneous
  Country: US (occurrence: US)
  Receive Date: 20181015
  Receipt Date: 20200911
  Transmission Date: 20201102
  Serious: Yes (Other)
  Sender: FDA-Public Use
  Company Number: US-PFIZER INC-2018418658

PATIENT
  Age: 48 Year
  Sex: Male

DRUGS (59)
  1. DILANTIN [Suspect]
     Active Substance: PHENYTOIN
     Indication: SEIZURE
     Dosage: 300 MG, 2X/DAY
     Route: 048
     Dates: start: 20050314
  2. DILANTIN [Suspect]
     Active Substance: PHENYTOIN
     Dosage: 100 MG, 2X/DAY
     Dates: start: 20120927, end: 20120928
  3. PHENYTOIN. [Suspect]
     Active Substance: PHENYTOIN
     Dosage: 400 MG, 2X/DAY
     Dates: start: 20100322
  4. LEVETIRACETAM. [Concomitant]
     Active Substance: LEVETIRACETAM
     Dosage: 2000 MG, 2X/DAY
     Dates: start: 20100322, end: 20180109
  5. FLEXERIL [Concomitant]
     Active Substance: CYCLOBENZAPRINE HYDROCHLORIDE
     Indication: MUSCLE SPASMS
     Dosage: 5 MG, 3X/DAY (AS NEEDED)
     Route: 048
  6. NORVASC [Concomitant]
     Active Substance: AMLODIPINE BESYLATE
     Indication: HYPERTENSIVE HEART DISEASE
     Dosage: UNK
     Dates: start: 20170519, end: 20180503
  7. DILANTIN [Suspect]
     Active Substance: PHENYTOIN
     Dosage: 200 MG, 2X/DAY
     Route: 048
     Dates: end: 20120927
  8. DILANTIN [Suspect]
     Active Substance: PHENYTOIN
     Indication: SEIZURE
     Dosage: 300 MG, 2X/DAY
     Dates: start: 20050314, end: 20091230
  9. PHENYTOIN. [Suspect]
     Active Substance: PHENYTOIN
     Dosage: 200 MG, 1X/DAY (IN MORNING)
     Dates: start: 20101028
  10. COMPAZINE [Concomitant]
     Active Substance: PROCHLORPERAZINE MALEATE
     Indication: NAUSEA
     Dosage: UNK
     Dates: start: 20050314
  11. ADVIL [Concomitant]
     Active Substance: IBUPROFEN
     Indication: HEADACHE
     Dosage: 200 MG, AS NEEDED (2 TO 3 TABLETS)
     Route: 048
  12. LEVETIRACETAM. [Concomitant]
     Active Substance: LEVETIRACETAM
     Dosage: 1500 MG, 2X/DAY
     Route: 048
  13. GLUCOPHAGE [Concomitant]
     Active Substance: METFORMIN HYDROCHLORIDE
     Indication: TYPE 2 DIABETES MELLITUS
     Dosage: UNK
     Dates: start: 20160614, end: 20180503
  14. NITROSTAT [Concomitant]
     Active Substance: NITROGLYCERIN
     Indication: CORONARY ARTERY DISEASE
     Dosage: UNK
     Route: 060
     Dates: start: 20170608, end: 20180503
  15. VALPROIC ACID. [Concomitant]
     Active Substance: VALPROIC ACID
     Dosage: UNK
     Dates: start: 19971103
  16. DILANTIN [Suspect]
     Active Substance: PHENYTOIN
     Dosage: 100 MG, 1X/DAY
     Route: 048
  17. DILANTIN [Suspect]
     Active Substance: PHENYTOIN
     Dosage: 200 MG, 1X/DAY (IN MORNING)
     Dates: start: 20110831
  18. DILANTIN [Suspect]
     Active Substance: PHENYTOIN
     Dosage: 200 MG, 2X/DAY
  19. PHENYTOIN. [Suspect]
     Active Substance: PHENYTOIN
     Dosage: 200 MG, 2X/DAY
     Dates: start: 20110819
  20. NEURONTIN [Concomitant]
     Active Substance: GABAPENTIN
     Indication: SEIZURE
     Dosage: 600 MG, 2X/DAY
  21. NEURONTIN [Concomitant]
     Active Substance: GABAPENTIN
     Dosage: UNK
     Dates: start: 19980128, end: 20180503
  22. LEVETIRACETAM. [Concomitant]
     Active Substance: LEVETIRACETAM
     Indication: SEIZURE
     Dosage: 500 MG, 2X/DAY
  23. LORTAB [Concomitant]
     Active Substance: ACETAMINOPHEN\HYDROCODONE BITARTRATE
     Indication: PAIN
     Dosage: UNK, EVERY 4 HRS (5?500MG, 1?2 TABLETS AS NEEDED)
     Route: 048
  24. TRILEPTAL [Concomitant]
     Active Substance: OXCARBAZEPINE
     Dosage: 300 MG TABLET IN THE EVENING (WEEK 1) TO 600 MG, 1 TAB TWICE A DAY (WEEK 4)
     Dates: start: 20121001, end: 20180109
  25. METOPROLOL TARTRATE. [Concomitant]
     Active Substance: METOPROLOL TARTRATE
     Indication: HYPERTENSION
     Dosage: 25 MG, 2X/DAY (1 TABLET)
     Route: 048
  26. DILANTIN [Suspect]
     Active Substance: PHENYTOIN
     Dosage: 50 MG, 2X/DAY
     Route: 048
     Dates: start: 20120928, end: 20120929
  27. CRESTOR [Concomitant]
     Active Substance: ROSUVASTATIN CALCIUM
     Indication: HYPERLIPIDAEMIA
     Dosage: UNK
     Dates: start: 20180109, end: 20180503
  28. PRINZIDE [Concomitant]
     Active Substance: HYDROCHLOROTHIAZIDE\LISINOPRIL
     Indication: HYPERTENSIVE HEART DISEASE
     Dosage: UNK
     Dates: start: 20140522, end: 20180503
  29. TOPROL XL [Concomitant]
     Active Substance: METOPROLOL SUCCINATE
     Indication: HYPERTENSIVE HEART DISEASE
     Dosage: UNK
     Dates: start: 20131017, end: 20180503
  30. THEO?DUR [Concomitant]
     Active Substance: THEOPHYLLINE ANHYDROUS
     Indication: ASTHMA
     Dosage: UNK
     Dates: start: 1978, end: 1984
  31. DILANTIN [Suspect]
     Active Substance: PHENYTOIN
     Dosage: 100 MG, 2X/DAY
     Dates: start: 2005, end: 20120930
  32. DILANTIN [Suspect]
     Active Substance: PHENYTOIN
     Dosage: 300 MG, 1X/DAY (AT NIGHT)
     Dates: start: 20110831
  33. DILANTIN [Suspect]
     Active Substance: PHENYTOIN
     Indication: SEIZURE
     Dosage: UNK
  34. KEPPRA [Concomitant]
     Active Substance: LEVETIRACETAM
     Indication: GENERALISED TONIC-CLONIC SEIZURE
     Dosage: 500 MG, 2X/DAY
     Route: 048
     Dates: start: 200503
  35. NEURONTIN [Concomitant]
     Active Substance: GABAPENTIN
     Dosage: 300 MG, 2X/DAY
     Route: 048
  36. GINKGO BILOBA [Concomitant]
     Active Substance: GINKGO
     Dosage: UNK
  37. CLARITIN [Concomitant]
     Active Substance: LORATADINE
     Indication: MULTIPLE ALLERGIES
     Dosage: UNK, AS NEEDED
  38. TRILEPTAL [Concomitant]
     Active Substance: OXCARBAZEPINE
     Indication: SEIZURE
     Dosage: 600 MG, 2X/DAY
     Route: 048
  39. TRILEPTAL [Concomitant]
     Active Substance: OXCARBAZEPINE
     Dosage: UNK
     Dates: start: 20121001, end: 20180604
  40. PRAVASTATIN. [Concomitant]
     Active Substance: PRAVASTATIN
     Indication: HYPERLIPIDAEMIA
     Dosage: 1 DF, 1X/DAY
     Route: 048
  41. PHENYTOIN. [Suspect]
     Active Substance: PHENYTOIN
     Dosage: 300 MG, 1X/DAY (AT NIGHT)
     Dates: start: 20101028
  42. KEPPRA [Concomitant]
     Active Substance: LEVETIRACETAM
     Indication: SEIZURE
     Dosage: 1500 MG, 2X/DAY
     Route: 048
  43. KEPPRA [Concomitant]
     Active Substance: LEVETIRACETAM
     Dosage: 2000 MG, 2X/DAY
  44. BENADRYL [Concomitant]
     Active Substance: DIPHENHYDRAMINE HYDROCHLORIDE
     Indication: NAUSEA
     Dosage: UNK
     Dates: start: 20050314
  45. IBUPROFEN. [Concomitant]
     Active Substance: IBUPROFEN
     Indication: HEADACHE
     Dosage: 800 MG, 1X/DAY
     Route: 048
  46. ETODOLAC. [Concomitant]
     Active Substance: ETODOLAC
     Indication: PAIN
     Dosage: 400 MG, 2X/DAY
     Route: 048
  47. OXYCODONE [Concomitant]
     Active Substance: OXYCODONE
     Indication: PAIN
     Dosage: 1 DF, AS NEEDED (1 TABLET EVERY EVENING)
     Route: 048
  48. TEGRETOL [Concomitant]
     Active Substance: CARBAMAZEPINE
     Dosage: 200 MG, 2X/DAY
     Dates: start: 19971022, end: 19971103
  49. VIMPAT [Concomitant]
     Active Substance: LACOSAMIDE
     Dosage: 50?100 MG, 2X/DAY
     Dates: start: 20120928, end: 20121006
  50. DILANTIN [Suspect]
     Active Substance: PHENYTOIN
     Indication: GENERALISED TONIC-CLONIC SEIZURE
     Dosage: UNK
     Route: 048
     Dates: start: 200502
  51. DILANTIN?125 [Suspect]
     Active Substance: PHENYTOIN
     Indication: SEIZURE
     Dosage: UNK, DAILY
     Dates: start: 1962, end: 1972
  52. PHENYTOIN. [Suspect]
     Active Substance: PHENYTOIN
     Indication: SEIZURE
     Dosage: 300 MG, 2X/DAY
     Dates: start: 20050314, end: 20091230
  53. KEPPRA [Concomitant]
     Active Substance: LEVETIRACETAM
     Dosage: (500 MG, 1000 MG, 15000 MG), 2X/DAY
     Dates: start: 20050406, end: 20100322
  54. NEURONTIN [Concomitant]
     Active Substance: GABAPENTIN
     Dosage: 300?1800 MG, 2X/DAY
     Dates: start: 19980128, end: 20180109
  55. ZESTORETIC [Concomitant]
     Active Substance: HYDROCHLOROTHIAZIDE\LISINOPRIL
     Indication: HYPERTENSIVE HEART DISEASE
     Dosage: UNK
     Dates: start: 20140522, end: 20180503
  56. DILANTIN [Suspect]
     Active Substance: PHENYTOIN
     Dosage: 100 MG, 2X/DAY
     Route: 048
     Dates: start: 20120927, end: 20120927
  57. DILANTIN [Suspect]
     Active Substance: PHENYTOIN
     Dosage: 300 MG, 2X/DAY
     Dates: start: 20110803
  58. KEPPRA [Concomitant]
     Active Substance: LEVETIRACETAM
     Dosage: UNK
     Dates: start: 20050406, end: 20180602
  59. TYLENOL [Concomitant]
     Active Substance: ACETAMINOPHEN
     Indication: HEADACHE
     Dosage: 500 MG, EVERY 4 HRS (2 TABLETS, AS NEEDED)
     Route: 048

REACTIONS (22)
  - Intervertebral disc protrusion [Unknown]
  - Hypoaesthesia [Unknown]
  - Gait disturbance [Unknown]
  - Visual impairment [Unknown]
  - Tremor [Unknown]
  - Cerebral atrophy [Not Recovered/Not Resolved]
  - Dizziness [Unknown]
  - Coordination abnormal [Unknown]
  - Muscular weakness [Unknown]
  - Dysarthria [Unknown]
  - Headache [Unknown]
  - Memory impairment [Unknown]
  - Neuropathy peripheral [Not Recovered/Not Resolved]
  - Cerebellar atrophy [Not Recovered/Not Resolved]
  - Intervertebral disc degeneration [Unknown]
  - Balance disorder [Unknown]
  - Rash pruritic [Unknown]
  - Sleep disorder [Unknown]
  - Disorientation [Unknown]
  - Ataxia [Not Recovered/Not Resolved]
  - Amnesia [Unknown]
  - Rash erythematous [Unknown]

NARRATIVE: CASE EVENT DATE: 20090511
